FAERS Safety Report 9845068 (Version 2)
Quarter: 2014Q1

REPORT INFORMATION
  Report Type: Spontaneous
  Country: US (occurrence: None)
  Receive Date: 20140122
  Receipt Date: 20140219
  Transmission Date: 20141002
  Serious: Yes (Other)
  Sender: FDA-Public Use
  Company Number: 2014P1000248

PATIENT
  Age: 15 Year
  Sex: Female

DRUGS (3)
  1. MYORISAN [Suspect]
     Indication: ACNE CYSTIC
     Route: 048
     Dates: start: 20130627
  2. MYORISAN [Suspect]
     Indication: SCAR
     Route: 048
     Dates: start: 20130627
  3. BIRTH CONTROL PILLS [Concomitant]

REACTIONS (2)
  - Dizziness [None]
  - Hypermobility syndrome [None]
